FAERS Safety Report 7272729-1 (Version None)
Quarter: 2011Q1

REPORT INFORMATION
  Report Type: 
  Country: None (occurrence: None)
  Receive Date: 20110126
  Receipt Date: 20110111
  Transmission Date: 20110831
  Serious: Yes (Hospitalization)
  Sender: FDA-Public Use
  Company Number: AUR-APL-2011-00285

PATIENT
  Age: 77 Year
  Sex: Female
  Weight: 65 kg

DRUGS (5)
  1. CONCOR [Concomitant]
  2. CITALOPRAM (PFIZER) FILM-COATED TABLET [Suspect]
     Dosage: 10MG-1 DOSE-ORAL
     Route: 048
     Dates: start: 20090723, end: 20090723
  3. ASPIRIN [Concomitant]
  4. SEROQUEL [Concomitant]
  5. TEMESTA [Concomitant]

REACTIONS (7)
  - ABNORMAL BEHAVIOUR [None]
  - RESTLESSNESS [None]
  - SEROTONIN SYNDROME [None]
  - DELIRIUM [None]
  - TENSION [None]
  - AGITATION [None]
  - COLD SWEAT [None]
